FAERS Safety Report 10387958 (Version 1)
Quarter: 2014Q3

REPORT INFORMATION
  Report Type: Spontaneous
  Country: CL (occurrence: CL)
  Receive Date: 20140815
  Receipt Date: 20140815
  Transmission Date: 20150326
  Serious: Yes (Disabling, Other)
  Sender: FDA-Public Use
  Company Number: CL-PFIZER INC-2014226797

PATIENT
  Sex: Female

DRUGS (1)
  1. LIPITOR [Suspect]
     Active Substance: ATORVASTATIN CALCIUM
     Dosage: 10 MG, UNK
     Dates: start: 1990

REACTIONS (4)
  - Blood creatine phosphokinase increased [Unknown]
  - Respiratory disorder [Unknown]
  - Paralysis [Unknown]
  - Myalgia [Unknown]

NARRATIVE: CASE EVENT DATE: 2012
